FAERS Safety Report 4334192-X (Version None)
Quarter: 2004Q2

REPORT INFORMATION
  Report Type: 
  Country: None (occurrence: None)
  Receive Date: 20040405
  Receipt Date: 20040318
  Transmission Date: 20050107
  Serious: Yes (Hospitalization)
  Sender: FDA-Public Use
  Company Number: 173459

PATIENT
  Sex: Male
  Weight: 82.1011 kg

DRUGS (5)
  1. AVONEX [Suspect]
     Indication: MULTIPLE SCLEROSIS
     Dosage: 30 MCG QW IM
     Route: 030
     Dates: start: 19981201, end: 20000601
  2. AVONEX [Suspect]
     Indication: MULTIPLE SCLEROSIS
     Dosage: 30 MCG QW IM
     Route: 030
     Dates: start: 20030916
  3. PROZAC [Concomitant]
  4. RITALIN [Concomitant]
  5. BACLOFEN [Concomitant]

REACTIONS (3)
  - CONDITION AGGRAVATED [None]
  - MEDICATION ERROR [None]
  - MULTIPLE SCLEROSIS [None]
